FAERS Safety Report 5976398-X (Version None)
Quarter: 2008Q4

REPORT INFORMATION
  Report Type: 
  Country: None (occurrence: None)
  Receive Date: 20081202
  Receipt Date: 20081124
  Transmission Date: 20090506
  Serious: Yes (Other)
  Sender: FDA-Public Use
  Company Number: DE-GILEAD-2008-0019179

PATIENT
  Sex: Male
  Weight: 62 kg

DRUGS (5)
  1. TRUVADA [Suspect]
     Indication: HIV INFECTION
     Route: 048
     Dates: start: 20060613, end: 20081106
  2. KIVEXA [Concomitant]
     Indication: HIV INFECTION
     Route: 048
     Dates: start: 20081106
  3. REYATAZ [Concomitant]
     Indication: HIV INFECTION
     Dates: start: 20080311
  4. VALPROIC ACID [Concomitant]
     Indication: EPILEPSY
  5. KEPPRA [Concomitant]
     Indication: EPILEPSY

REACTIONS (1)
  - PROTEINURIA [None]
